FAERS Safety Report 14605381 (Version 1)
Quarter: 2018Q1

REPORT INFORMATION
  Report Type: Other
  Country: GB (occurrence: GB)
  Receive Date: 20180306
  Receipt Date: 20180306
  Transmission Date: 20180509
  Serious: Yes (Hospitalization)
  Sender: FDA-Public Use
  Company Number: GB-LEADING PHARMA-2043091

PATIENT
  Age: 78 Year
  Sex: Male

DRUGS (1)
  1. FOLIC ACID. [Suspect]
     Active Substance: FOLIC ACID
     Route: 048

REACTIONS (1)
  - Vascular insufficiency [Recovered/Resolved]
